FAERS Safety Report 10587689 (Version 2)
Quarter: 2014Q4

REPORT INFORMATION
  Report Type: Spontaneous
  Country: US (occurrence: US)
  Receive Date: 20141117
  Receipt Date: 20141119
  Transmission Date: 20150529
  Serious: Yes (Other)
  Sender: FDA-Public Use
  Company Number: CHPA2014US015175

PATIENT
  Age: 36 Year
  Sex: Male

DRUGS (4)
  1. VOLTAREN [Suspect]
     Active Substance: DICLOFENAC SODIUM
     Indication: OFF LABEL USE
     Dosage: FINGER-TIP AMOUNT, BID
     Route: 061
     Dates: start: 201407
  2. DICLOFENAC [Suspect]
     Active Substance: DICLOFENAC
     Indication: PRODUCT USED FOR UNKNOWN INDICATION
     Dosage: UNK
     Route: 048
     Dates: start: 2004
  3. VOLTAREN [Suspect]
     Active Substance: DICLOFENAC SODIUM
     Indication: TENDONITIS
     Dosage: SMALL AMOUNT, UNK
     Route: 061
     Dates: start: 2007
  4. VOLTAREN [Suspect]
     Active Substance: DICLOFENAC SODIUM
     Indication: TENDON PAIN
     Dosage: FINGER-TIP AMOUNT, PRN
     Route: 061
     Dates: start: 2014

REACTIONS (9)
  - Fatigue [Recovered/Resolved]
  - Drug administered at inappropriate site [Unknown]
  - Tendon pain [Not Recovered/Not Resolved]
  - Vitamin D deficiency [Recovering/Resolving]
  - Wrong technique in drug usage process [Unknown]
  - Abdominal discomfort [Recovered/Resolved]
  - Diarrhoea [Recovered/Resolved]
  - Therapeutic response unexpected [Unknown]
  - Tendon rupture [Recovered/Resolved]

NARRATIVE: CASE EVENT DATE: 2008
